FAERS Safety Report 10888249 (Version 2)
Quarter: 2015Q3

REPORT INFORMATION
  Report Type: Spontaneous
  Country: US (occurrence: US)
  Receive Date: 20150304
  Receipt Date: 20150819
  Transmission Date: 20151125
  Serious: Yes (Death, Hospitalization, Other)
  Sender: FDA-Public Use
  Company Number: US-UCBSA-2015006102

PATIENT
  Age: 56 Year
  Sex: Male
  Weight: 86 kg

DRUGS (3)
  1. COUMADIN [Concomitant]
     Active Substance: WARFARIN SODIUM
     Indication: CORONARY ARTERIAL STENT INSERTION
     Dosage: DAILY
     Route: 048
     Dates: end: 201304
  2. CIMZIA [Suspect]
     Active Substance: CERTOLIZUMAB PEGOL
     Indication: RHEUMATOID ARTHRITIS
     Dosage: 200 MG, EV 2 WEEKS(QOW)
     Route: 058
     Dates: start: 2010, end: 20130713
  3. TIKOSYN [Suspect]
     Active Substance: DOFETILIDE
     Indication: PRODUCT USED FOR UNKNOWN INDICATION
     Dosage: 500 MG, 2X/DAY (BID)
     Route: 048

REACTIONS (2)
  - Ulcer haemorrhage [Recovered/Resolved]
  - Myocardial infarction [Fatal]

NARRATIVE: CASE EVENT DATE: 201304
